FAERS Safety Report 4280652-X (Version None)
Quarter: 2004Q1

REPORT INFORMATION
  Report Type: 
  Country: None (occurrence: None)
  Receive Date: 20040123
  Receipt Date: 20040108
  Transmission Date: 20041129
  Serious: Yes (Hospitalization)
  Sender: FDA-Public Use
  Company Number: CAN-2004-0000113

PATIENT
  Sex: Male

DRUGS (6)
  1. UNIPHYL TABLETS (THEOPHYLLINE) CR TAB DAILY [Suspect]
  2. LOSEC (OMEPRAZOLE) [Suspect]
  3. FLOVENT [Suspect]
  4. NORVASC [Suspect]
  5. VENTOLIN [Suspect]
  6. ATROVENT [Suspect]
     Dosage: ORAL
     Route: 048

REACTIONS (1)
  - RASH [None]
